FAERS Safety Report 4805785-8 (Version None)
Quarter: 2005Q4

REPORT INFORMATION
  Report Type: 
  Country: None (occurrence: None)
  Receive Date: 20051018
  Receipt Date: 20051005
  Transmission Date: 20060501
  Serious: No
  Sender: FDA-Public Use
  Company Number: 218071

PATIENT
  Age: 65 Year
  Sex: Female
  Weight: 88.4 kg

DRUGS (14)
  1. RITUXAN (RITUXIMAB) CONC FOR SOLUTION FOR INFUSION [Suspect]
     Indication: NON-HODGKIN'S LYMPHOMA
     Dosage: SEE IMAGE
     Dates: start: 20050301, end: 20050502
  2. RITUXAN (RITUXIMAB) CONC FOR SOLUTION FOR INFUSION [Suspect]
     Indication: NON-HODGKIN'S LYMPHOMA
     Dosage: SEE IMAGE
     Dates: start: 20050329, end: 20050502
  3. CYTOXAN [Concomitant]
  4. FLUDARA [Concomitant]
  5. TAMOXIFEN CITRATE [Concomitant]
  6. ELAVIL [Concomitant]
  7. BACTRIM DS [Concomitant]
  8. VALTREX [Concomitant]
  9. PREDNISONE [Concomitant]
  10. NAPROSYN [Concomitant]
  11. PROTONIX [Concomitant]
  12. ALLEGRA D 24 HOUR [Concomitant]
  13. VITAMINS (VITAMINS NOS) [Concomitant]
  14. NEUPOGEN [Concomitant]

REACTIONS (7)
  - BRONCHIECTASIS [None]
  - BRONCHITIS ACUTE [None]
  - EFFUSION [None]
  - HAEMOGLOBIN DECREASED [None]
  - INTERSTITIAL LUNG DISEASE [None]
  - NEUTROPHIL PERCENTAGE DECREASED [None]
  - WHITE BLOOD CELL COUNT DECREASED [None]
